FAERS Safety Report 22221984 (Version 3)
Quarter: 2023Q2

REPORT INFORMATION
  Report Type: Report from Study
  Country: AU (occurrence: AU)
  Receive Date: 20230418
  Receipt Date: 20230510
  Transmission Date: 20230721
  Serious: Yes (Hospitalization)
  Sender: FDA-Public Use
  Company Number: AU-GILEAD-2023-0624599

PATIENT
  Age: 69 Year
  Sex: Female
  Weight: 50.1 kg

DRUGS (34)
  1. SACITUZUMAB GOVITECAN-HZIY [Suspect]
     Active Substance: SACITUZUMAB GOVITECAN-HZIY
     Indication: Triple negative breast cancer
     Dosage: 500 MG, Q2WK
     Route: 042
     Dates: start: 20210526
  2. SACITUZUMAB GOVITECAN-HZIY [Suspect]
     Active Substance: SACITUZUMAB GOVITECAN-HZIY
     Dosage: 249 MG, Q2WK
     Route: 042
     Dates: start: 20221229
  3. ATEZOLIZUMAB [Suspect]
     Active Substance: ATEZOLIZUMAB
     Indication: Triple negative breast cancer
     Dosage: 1200 MG, Q3WK
     Route: 041
     Dates: start: 20210526, end: 20230328
  4. ATORVASTATIN [Concomitant]
     Active Substance: ATORVASTATIN
     Indication: Dyslipidaemia
     Dosage: 80 MG, QD
     Dates: start: 201504
  5. OLMESARTAN [Concomitant]
     Active Substance: OLMESARTAN
     Indication: Hypertension
     Dosage: 20 MG, QD
     Dates: start: 201504
  6. APREPITANT [Concomitant]
     Active Substance: APREPITANT
     Dosage: 165 MG
     Dates: start: 20210526
  7. PALONOSETRON [Concomitant]
     Active Substance: PALONOSETRON
     Dosage: 250 UG
     Dates: start: 20210526
  8. NIZATIDINE [Concomitant]
     Active Substance: NIZATIDINE
     Dosage: 300 MG
     Dates: start: 20210526
  9. ACETAMINOPHEN [Concomitant]
     Active Substance: ACETAMINOPHEN
     Dosage: 1 G
     Dates: start: 20210526
  10. LORATADINE [Concomitant]
     Active Substance: LORATADINE
     Indication: Pruritus
     Dosage: 10 MG, QD
     Dates: start: 20210610
  11. LORATADINE [Concomitant]
     Active Substance: LORATADINE
     Indication: Rhinitis allergic
  12. PANTOPRAZOLE SODIUM [Concomitant]
     Active Substance: PANTOPRAZOLE SODIUM
     Indication: Gastrooesophageal reflux disease
     Dosage: 20 MG
     Dates: start: 20210713
  13. LOPERAMIDE [Concomitant]
     Active Substance: LOPERAMIDE
     Indication: Diarrhoea
     Dosage: 2 MG
     Dates: start: 20210616
  14. METHYLPREDNISOLONE ACEPONATE [Concomitant]
     Active Substance: METHYLPREDNISOLONE ACEPONATE
     Dosage: 0.1 %, QD
     Dates: start: 20210814
  15. IRON [Concomitant]
     Active Substance: IRON
     Indication: Fatigue
     Dosage: UNK
     Dates: start: 20211117
  16. PRUNUS SPP. [Concomitant]
     Dosage: UNK
     Dates: start: 20220131
  17. BUTYLSCOPOLAMINE BROMIDE [Concomitant]
     Active Substance: BUTYLSCOPOLAMINE BROMIDE
     Indication: Flank pain
     Dosage: 10 MG
     Dates: start: 20220219
  18. APIXABAN [Concomitant]
     Active Substance: APIXABAN
     Indication: Pulmonary embolism
     Dosage: 2.5 MG
     Dates: start: 20220312
  19. METOCLOPRAMIDE [Concomitant]
     Active Substance: METOCLOPRAMIDE
     Indication: Nausea
     Dosage: 10 MG
     Dates: start: 20210526
  20. JANUMET XR [Concomitant]
     Active Substance: METFORMIN HYDROCHLORIDE\SITAGLIPTIN PHOSPHATE
     Indication: Type 2 diabetes mellitus
     Dosage: 1050 MG
     Dates: start: 20220528
  21. OLANZAPINE [Concomitant]
     Active Substance: OLANZAPINE
     Indication: Nausea
     Dosage: 2.5 MG, QD
     Dates: start: 20220627
  22. CITRIC ACID MONOHYDRATE\SODIUM BICARBONATE\SODIUM CITRATE\TARTARIC ACI [Concomitant]
     Active Substance: CITRIC ACID MONOHYDRATE\SODIUM BICARBONATE\SODIUM CITRATE\TARTARIC ACID
     Dosage: UNK
     Dates: start: 20220627
  23. METHYL SALICYLATE\PEPPERMINT OIL\SODIUM BICARBONATE\SODIUM CHLORIDE [Concomitant]
     Active Substance: METHYL SALICYLATE\PEPPERMINT OIL\SODIUM BICARBONATE\SODIUM CHLORIDE
     Dosage: UNK
     Dates: start: 20220602
  24. TRANEXAMIC ACID [Concomitant]
     Active Substance: TRANEXAMIC ACID
     Dosage: 500 MG
     Dates: start: 20220824
  25. GLICLAZIDE [Concomitant]
     Active Substance: GLICLAZIDE
     Indication: Type 2 diabetes mellitus
     Dosage: 30 MG, QD
     Dates: start: 20221220
  26. GLICLAZIDE [Concomitant]
     Active Substance: GLICLAZIDE
     Indication: Hyperglycaemia
  27. LYRICA [Concomitant]
     Active Substance: PREGABALIN
     Indication: Peripheral sensory neuropathy
     Dosage: 25 MG, QD
     Dates: start: 20221219
  28. DOXORUBICIN [Concomitant]
     Active Substance: DOXORUBICIN
  29. CYCLOPHOSPHAMIDE [Concomitant]
     Active Substance: CYCLOPHOSPHAMIDE
  30. FLUOROURACIL [Concomitant]
     Active Substance: FLUOROURACIL
  31. SYSTANE ULTRA [Concomitant]
     Active Substance: POLYETHYLENE GLYCOL 400\PROPYLENE GLYCOL
  32. METHOTREXATE [Concomitant]
     Active Substance: METHOTREXATE
  33. URAL [Concomitant]
     Indication: Dysuria
     Dates: start: 20220627
  34. PREDNISOLONE [Concomitant]
     Active Substance: PREDNISOLONE

REACTIONS (2)
  - Arthralgia [Unknown]
  - Arthritis [Recovered/Resolved with Sequelae]

NARRATIVE: CASE EVENT DATE: 20230408
